FAERS Safety Report 7145063-8 (Version None)
Quarter: 2010Q4

REPORT INFORMATION
  Report Type: 
  Country: None (occurrence: None)
  Receive Date: 20101208
  Receipt Date: 20101130
  Transmission Date: 20110411
  Serious: Yes (Hospitalization)
  Sender: FDA-Public Use
  Company Number: US-JNJFOC-20101200742

PATIENT
  Sex: Male
  Weight: 95.71 kg

DRUGS (7)
  1. DURAGESIC-100 [Suspect]
     Indication: PAIN
     Route: 062
  2. DEMEROL [Concomitant]
     Indication: PAIN
     Dosage: AS NEEDED
     Route: 048
  3. PREVACID [Concomitant]
     Indication: GASTRIC DISORDER
     Route: 048
  4. WELLBUTRIN [Concomitant]
     Indication: DEPRESSION
     Route: 048
  5. LAMICTAL [Concomitant]
     Indication: CONVULSION
     Dosage: 100 MG TABLET/300 MG/2 PER DAY
     Route: 048
  6. VALIUM [Concomitant]
     Indication: ANXIETY
     Dosage: AS NEEDED
     Route: 048
  7. HALCION [Concomitant]
     Indication: SLEEP DISORDER
     Dosage: ONE AT NIGHT
     Route: 048

REACTIONS (4)
  - CEREBROVASCULAR ACCIDENT [None]
  - DRUG INEFFECTIVE [None]
  - MYOCARDIAL INFARCTION [None]
  - PRODUCT QUALITY ISSUE [None]
